FAERS Safety Report 6889209-5 (Version None)
Quarter: 2010Q3

REPORT INFORMATION
  Report Type: 
  Country: None (occurrence: None)
  Receive Date: 20100730
  Receipt Date: 20080108
  Transmission Date: 20110219
  Serious: No
  Sender: FDA-Public Use
  Company Number: US-PFIZER INC-2008002263

PATIENT
  Sex: Male
  Weight: 60 kg

DRUGS (7)
  1. LIPITOR [Suspect]
     Indication: BLOOD CHOLESTEROL INCREASED
     Dates: start: 20080103, end: 20080105
  2. FUROSEMIDE [Concomitant]
  3. METOPROLOL TARTRATE [Concomitant]
  4. KLOR-CON [Concomitant]
  5. ACETYLSALICYLIC ACID SRT [Concomitant]
  6. TAMSULOSIN HYDROCHLORIDE [Concomitant]
  7. BENTYL [Concomitant]

REACTIONS (2)
  - GAIT DISTURBANCE [None]
  - PAIN IN EXTREMITY [None]
